FAERS Safety Report 8150369-X (Version None)
Quarter: 2012Q1

REPORT INFORMATION
  Report Type: 
  Country: None (occurrence: None)
  Receive Date: 20120220
  Receipt Date: 20120215
  Transmission Date: 20120608
  Serious: Yes (Other)
  Sender: FDA-Public Use
  Company Number: US-PFIZER INC-2012042355

PATIENT

DRUGS (5)
  1. METOPROLOL [Concomitant]
     Dosage: UNK
  2. INSULIN [Concomitant]
     Dosage: UNK
  3. EFFIENT [Concomitant]
     Dosage: UNK
  4. LIPITOR [Suspect]
     Dosage: 40 MG, (1 TAB PO QHS)
     Route: 048
  5. ASPIRIN [Concomitant]
     Dosage: UNK

REACTIONS (2)
  - CORONARY ARTERY DISEASE [None]
  - TYPE 1 DIABETES MELLITUS [None]
